FAERS Safety Report 9207593 (Version 1)
Quarter: 2013Q2

REPORT INFORMATION
  Report Type: Spontaneous
  Country: US (occurrence: None)
  Receive Date: 20130402
  Receipt Date: 20130402
  Transmission Date: 20140414
  Serious: Yes (Other)
  Sender: FDA-Public Use
  Company Number: None

PATIENT
  Age: 83 Year
  Sex: Male
  Weight: 72.58 kg

DRUGS (1)
  1. SILODOSIN [Suspect]
     Indication: URINARY RETENTION
     Dosage: 1
     Route: 048
     Dates: start: 20120225, end: 20130305

REACTIONS (2)
  - Dysuria [None]
  - Haemorrhage [None]
